FAERS Safety Report 7433762-X (Version None)
Quarter: 2011Q2

REPORT INFORMATION
  Report Type: 
  Country: None (occurrence: None)
  Receive Date: 20110425
  Receipt Date: 20110411
  Transmission Date: 20111010
  Serious: Yes (Hospitalization, Other)
  Sender: FDA-Public Use
  Company Number: CA-PAR PHARMACEUTICAL, INC-2011SCPR002920

PATIENT
  Age: 22 Month
  Sex: Female
  Weight: 10.6 kg

DRUGS (11)
  1. CAPTOPRIL [Suspect]
     Indication: PRODUCT USED FOR UNKNOWN INDICATION
     Dosage: 10 MG, TID
     Route: 065
  2. REMIFENTANIL [Suspect]
     Indication: ANAESTHESIA
     Dosage: 1 A?G/KG, BOLUS
     Route: 042
  3. AMIODARONE [Concomitant]
     Indication: PRODUCT USED FOR UNKNOWN INDICATION
     Dosage: 50 MG, QD
     Route: 065
  4. SEVOFLURANE [Suspect]
     Indication: ANAESTHESIA
     Dosage: 3%
     Route: 065
  5. SEVOFLURANE [Suspect]
     Indication: DENTAL OPERATION
  6. FUROSEMIDE [Concomitant]
     Indication: PRODUCT USED FOR UNKNOWN INDICATION
     Dosage: 5 MG, BID
     Route: 065
  7. ACETAMINOPHEN [Concomitant]
     Indication: DENTAL OPERATION
     Dosage: 300 MG, UNKNOWN
     Route: 048
  8. DIGOXIN [Concomitant]
     Indication: PRODUCT USED FOR UNKNOWN INDICATION
     Dosage: 60 A?G, ONCE A DAY
     Route: 065
  9. MIDAZOLAM [Concomitant]
     Indication: DENTAL OPERATION
     Dosage: 5 MG, UNKNOWN
     Route: 048
  10. CARVEDILOL [Suspect]
     Indication: PRODUCT USED FOR UNKNOWN INDICATION
     Dosage: 4.5 MG, BID
     Route: 065
  11. MIVACURIUM [Concomitant]
     Indication: ENDOTRACHEAL INTUBATION
     Dosage: 2 MG, UNKNOWN
     Route: 065

REACTIONS (2)
  - CIRCULATORY COLLAPSE [None]
  - CARDIAC ARREST [None]
